FAERS Safety Report 7394378-7 (Version None)
Quarter: 2011Q2

REPORT INFORMATION
  Report Type: 
  Country: None (occurrence: None)
  Receive Date: 20110405
  Receipt Date: 20110323
  Transmission Date: 20111010
  Serious: Yes (Other)
  Sender: FDA-Public Use
  Company Number: US-ELI_LILLY_AND_COMPANY-US201006004632

PATIENT
  Sex: Female

DRUGS (2)
  1. FORTEO [Suspect]
     Dosage: 20 UG, UNKNOWN
     Dates: end: 20110301
  2. FORTEO [Suspect]
     Dosage: 20 UG, UNKNOWN
     Dates: start: 20110312

REACTIONS (2)
  - BREAST CANCER [None]
  - DRY MOUTH [None]
